FAERS Safety Report 12491545 (Version 1)
Quarter: 2016Q2

REPORT INFORMATION
  Report Type: Spontaneous
  Country: US (occurrence: None)
  Receive Date: 20160622
  Receipt Date: 20160622
  Transmission Date: 20160815
  Serious: No
  Sender: FDA-Public Use
  Company Number: None

PATIENT
  Age: 40 Year
  Sex: Female
  Weight: 126.1 kg

DRUGS (4)
  1. LEVOXAL [Concomitant]
  2. CELEBREX [Concomitant]
     Active Substance: CELECOXIB
  3. VITAMIN D [Concomitant]
     Active Substance: CHOLECALCIFEROL
  4. CONTRAVE [Suspect]
     Active Substance: BUPROPION HYDROCHLORIDE\NALTREXONE HYDROCHLORIDE

REACTIONS (4)
  - Alopecia [None]
  - Vomiting [None]
  - Hypophagia [None]
  - Nausea [None]

NARRATIVE: CASE EVENT DATE: 20160522
